FAERS Safety Report 7723679-5 (Version None)
Quarter: 2011Q3

REPORT INFORMATION
  Report Type: 
  Country: None (occurrence: None)
  Receive Date: 20110901
  Receipt Date: 20110819
  Transmission Date: 20111222
  Serious: Yes (Death, Life-Threatening, Other)
  Sender: FDA-Public Use
  Company Number: CA-ELI_LILLY_AND_COMPANY-CA201108006120

PATIENT
  Sex: Male

DRUGS (3)
  1. TRIFLUOPERAZIN [Concomitant]
  2. ZYPREXA [Suspect]
     Indication: SCHIZOPHRENIA
     Dosage: 17.5 MG, EACH EVENING
  3. ZYPREXA [Suspect]
     Dosage: 20 MG, EACH EVENING
     Dates: start: 19980501

REACTIONS (9)
  - DEATH [None]
  - CARDIAC ARREST [None]
  - RENAL FAILURE [None]
  - ASPARTATE AMINOTRANSFERASE INCREASED [None]
  - DIABETES MELLITUS [None]
  - ANAEMIA [None]
  - RESPIRATORY ARREST [None]
  - THROMBOCYTOPENIA [None]
  - WEIGHT INCREASED [None]
